FAERS Safety Report 7270197-7 (Version None)
Quarter: 2010Q4

REPORT INFORMATION
  Report Type: 
  Country: None (occurrence: None)
  Receive Date: 20101130
  Receipt Date: 20100128
  Transmission Date: 20110411
  Serious: No
  Sender: FDA-Public Use
  Company Number: 2009-197319-NL

PATIENT
  Age: 17 Year
  Sex: Female
  Weight: 50.8029 kg

DRUGS (1)
  1. NUVARING [Suspect]
     Indication: PRODUCT USED FOR UNKNOWN INDICATION
     Dates: start: 20080501

REACTIONS (1)
  - METRORRHAGIA [None]
